FAERS Safety Report 21088760 (Version 2)
Quarter: 2022Q3

REPORT INFORMATION
  Report Type: Spontaneous
  Country: CA (occurrence: CA)
  Receive Date: 20220715
  Receipt Date: 20220830
  Transmission Date: 20221027
  Serious: Yes (Other)
  Sender: FDA-Public Use
  Company Number: CA-PFIZER INC-202200952462

PATIENT
  Age: 67 Year
  Sex: Female

DRUGS (3)
  1. RUXIENCE [Suspect]
     Active Substance: RITUXIMAB-PVVR
     Indication: Rheumatoid arthritis
     Dosage: 1000 MG AT DAY 1 AND 15
     Route: 042
     Dates: start: 20210806, end: 20210820
  2. RUXIENCE [Suspect]
     Active Substance: RITUXIMAB-PVVR
     Dosage: 1000 MG AT DAY 1 AND 15
     Route: 042
     Dates: start: 20220311, end: 20220325
  3. METHOTREXATE [Concomitant]
     Active Substance: METHOTREXATE
     Dosage: UNK
     Route: 065

REACTIONS (4)
  - Syncope [Unknown]
  - Fall [Unknown]
  - Tooth loss [Unknown]
  - Infection [Not Recovered/Not Resolved]
